FAERS Safety Report 9652942 (Version 2)
Quarter: 2013Q4

REPORT INFORMATION
  Report Type: Spontaneous
  Country: US (occurrence: US)
  Receive Date: 20131029
  Receipt Date: 20131202
  Transmission Date: 20140711
  Serious: No
  Sender: FDA-Public Use
  Company Number: US-009507513-1310USA012962

PATIENT
  Age: 58 Year
  Sex: Female

DRUGS (1)
  1. LIPTRUZET [Suspect]
     Indication: BLOOD CHOLESTEROL ABNORMAL
     Dosage: 10/40 MG, QD
     Route: 048
     Dates: start: 201306

REACTIONS (1)
  - Alopecia [Not Recovered/Not Resolved]
